FAERS Safety Report 6632395-2 (Version None)
Quarter: 2010Q1

REPORT INFORMATION
  Report Type: 
  Country: None (occurrence: None)
  Receive Date: 20100310
  Receipt Date: 20100225
  Transmission Date: 20100710
  Serious: Yes (Other)
  Sender: FDA-Public Use
  Company Number: 2010-0295

PATIENT
  Sex: Male
  Weight: 54.4 kg

DRUGS (1)
  1. DYSPORT [Suspect]
     Indication: SKIN WRINKLING
     Dosage: 80 UNITS (80 UNITS,SINGLE CYCLE), UNKNOWN
     Dates: start: 20090101, end: 20090101

REACTIONS (3)
  - ASTHENOPIA [None]
  - EYELID PTOSIS [None]
  - OFF LABEL USE [None]
